FAERS Safety Report 7987113-2 (Version None)
Quarter: 2011Q4

REPORT INFORMATION
  Report Type: 
  Country: None (occurrence: None)
  Receive Date: 20111216
  Receipt Date: 20110317
  Transmission Date: 20120403
  Serious: No
  Sender: FDA-Public Use
  Company Number: US-BRISTOL-MYERS SQUIBB COMPANY-15615446

PATIENT
  Age: 73 Year
  Sex: Female
  Weight: 73 kg

DRUGS (6)
  1. ABILIFY [Suspect]
     Indication: DEPRESSION
     Dosage: TAKING LESS THAN YEAR
  2. ALENDRONATE SODIUM [Concomitant]
  3. PRAVASTATIN [Concomitant]
  4. CALCITRATE [Concomitant]
  5. NAPROXEN (ALEVE) [Concomitant]
  6. CYMBALTA [Suspect]

REACTIONS (5)
  - BLOOD CHOLESTEROL INCREASED [None]
  - CHILLS [None]
  - DRY EYE [None]
  - HYPERHIDROSIS [None]
  - DRY MOUTH [None]
